FAERS Safety Report 6025015-1 (Version None)
Quarter: 2008Q4

REPORT INFORMATION
  Report Type: 
  Country: None (occurrence: None)
  Receive Date: 20081230
  Receipt Date: 20081230
  Transmission Date: 20090506
  Serious: Yes (Other)
  Sender: FDA-Public Use
  Company Number: None

PATIENT
  Age: 60 Year
  Sex: Male
  Weight: 73.4827 kg

DRUGS (2)
  1. BACLOFEN [Suspect]
     Indication: BACK INJURY
     Dosage: 10 MG TWICE A DAY PO
     Route: 048
     Dates: start: 20081205, end: 20081212
  2. FLEXERIL [Suspect]
     Indication: BACK INJURY
     Dosage: 10 MG THREE TIMES A DAY PO
     Route: 048
     Dates: start: 20081217, end: 20081221

REACTIONS (4)
  - DYSURIA [None]
  - EJACULATION DISORDER [None]
  - PAIN [None]
  - URINE FLOW DECREASED [None]
